FAERS Safety Report 7138036-2 (Version None)
Quarter: 2010Q4

REPORT INFORMATION
  Report Type: 
  Country: None (occurrence: None)
  Receive Date: 20101206
  Receipt Date: 20101130
  Transmission Date: 20110411
  Serious: Yes (Hospitalization)
  Sender: FDA-Public Use
  Company Number: UA-GENZYME-CAMP-1000499

PATIENT
  Sex: Female
  Weight: 50 kg

DRUGS (7)
  1. ALEMTUZUMAB [Suspect]
     Indication: MULTIPLE SCLEROSIS
     Dosage: 12 MG, QDX5
     Route: 042
     Dates: start: 20080723, end: 20080727
  2. ALEMTUZUMAB [Suspect]
     Dosage: 12 MG, QDX3
     Route: 042
     Dates: start: 20090722, end: 20090724
  3. METHYLPREDNISOLONE [Concomitant]
     Indication: MULTIPLE SCLEROSIS
     Dosage: 1 G, QDX3
     Route: 042
     Dates: start: 20080723, end: 20080725
  4. METHYLPREDNISOLONE [Concomitant]
     Dosage: 1 G, QDX3
     Route: 042
     Dates: start: 20090722, end: 20090724
  5. ACYCLOVIR [Concomitant]
     Indication: PROPHYLAXIS
     Dosage: 200 MG, BID
     Route: 048
     Dates: start: 20090722, end: 20090821
  6. AUGMENTIN [Concomitant]
     Indication: COUGH
     Dosage: 625 MG, BID
     Route: 048
     Dates: start: 20090818, end: 20090822
  7. AUGMENTIN [Concomitant]
     Indication: NASOPHARYNGITIS

REACTIONS (1)
  - DISSEMINATED TUBERCULOSIS [None]
